FAERS Safety Report 10075549 (Version 1)
Quarter: 2014Q2

REPORT INFORMATION
  Report Type: Spontaneous
  Country: CO (occurrence: CO)
  Receive Date: 20140414
  Receipt Date: 20140414
  Transmission Date: 20141212
  Serious: Yes (Death, Other)
  Sender: FDA-Public Use
  Company Number: CO-JNJFOC-20140405703

PATIENT
  Age: 84 Year
  Sex: Male

DRUGS (11)
  1. XARELTO [Suspect]
     Indication: CEREBROVASCULAR ACCIDENT PROPHYLAXIS
     Route: 048
  2. XARELTO [Suspect]
     Indication: ATRIAL FIBRILLATION
     Route: 048
  3. OMEPRAZOLE [Concomitant]
     Indication: PROPHYLAXIS
     Route: 048
  4. INSULIN [Concomitant]
     Indication: TYPE 2 DIABETES MELLITUS
     Route: 048
  5. LOSARTAN [Concomitant]
     Indication: HYPERTENSION
     Route: 065
  6. ASA [Concomitant]
     Route: 048
  7. TRAZODONE [Concomitant]
     Route: 048
  8. CLOPIDOGREL [Concomitant]
     Route: 048
  9. CARVEDILOL [Concomitant]
     Indication: CARDIAC FAILURE CHRONIC
     Route: 048
  10. FUROSEMIDE [Concomitant]
     Indication: HYPERTENSION
     Route: 048
  11. LOVASTATIN [Concomitant]
     Route: 048

REACTIONS (10)
  - Cardio-respiratory arrest [Fatal]
  - Hypovolaemic shock [Unknown]
  - Haematemesis [Unknown]
  - Melaena [Unknown]
  - Gastrointestinal haemorrhage [Unknown]
  - Pallor [Unknown]
  - Hypotension [Unknown]
  - Asthenia [Unknown]
  - Hyperhidrosis [Unknown]
  - Abdominal pain [Unknown]
